FAERS Safety Report 8374991-0 (Version None)
Quarter: 2012Q2

REPORT INFORMATION
  Report Type: 
  Country: None (occurrence: None)
  Receive Date: 20120521
  Receipt Date: 20120508
  Transmission Date: 20120825
  Serious: Yes (Life-Threatening, Other)
  Sender: FDA-Public Use
  Company Number: BR-ROCHE-1067455

PATIENT

DRUGS (3)
  1. COPEGUS [Suspect]
     Indication: HEPATITIS C
  2. PEGASYS [Interacting]
     Indication: HEPATITIS C
  3. CAPTOPRIL [Interacting]
     Indication: HYPERTENSION

REACTIONS (11)
  - DRUG INTERACTION [None]
  - ANAEMIA [None]
  - ATRIAL FIBRILLATION [None]
  - UVEITIS [None]
  - DEPRESSIVE SYMPTOM [None]
  - PYREXIA [None]
  - ARRHYTHMIA [None]
  - PAIN [None]
  - NEUTROPENIA [None]
  - FATIGUE [None]
  - THROMBOCYTOPENIA [None]
